FAERS Safety Report 7557367-5 (Version None)
Quarter: 2011Q2

REPORT INFORMATION
  Report Type: 
  Country: None (occurrence: None)
  Receive Date: 20110620
  Receipt Date: 20110606
  Transmission Date: 20111010
  Serious: Yes (Other)
  Sender: FDA-Public Use
  Company Number: PHHY2011MX49769

PATIENT
  Sex: Female

DRUGS (1)
  1. RASILEZ HCT [Suspect]
     Indication: HYPERTENSION
     Dosage: 2 DF, DAILY
     Dates: start: 20110201

REACTIONS (2)
  - DYSPEPSIA [None]
  - GASTRITIS HAEMORRHAGIC [None]
